FAERS Safety Report 8170462-5 (Version None)
Quarter: 2012Q1

REPORT INFORMATION
  Report Type: 
  Country: None (occurrence: None)
  Receive Date: 20120228
  Receipt Date: 20120227
  Transmission Date: 20120608
  Serious: No
  Sender: FDA-Public Use
  Company Number: US-PFIZER INC-2012051626

PATIENT
  Age: 43 Year
  Sex: Male
  Weight: 105 kg

DRUGS (1)
  1. LIPITOR [Suspect]
     Indication: BLOOD CHOLESTEROL ABNORMAL
     Dosage: 40 MG, DAILY
     Dates: start: 20120220, end: 20120224

REACTIONS (9)
  - ARTHRALGIA [None]
  - INSOMNIA [None]
  - ABDOMINAL DISTENSION [None]
  - FLATULENCE [None]
  - RHINORRHOEA [None]
  - COUGH [None]
  - CHEST PAIN [None]
  - ERUCTATION [None]
  - DYSPNOEA [None]
